FAERS Safety Report 5788460-5 (Version None)
Quarter: 2008Q2

REPORT INFORMATION
  Report Type: 
  Country: None (occurrence: None)
  Receive Date: 20080623
  Receipt Date: 20080609
  Transmission Date: 20081010
  Serious: Yes (Other)
  Sender: FDA-Public Use
  Company Number: 2008AL006611

PATIENT
  Age: 83 Year
  Sex: Male
  Weight: 68.0396 kg

DRUGS (1)
  1. DIGOXIN [Suspect]
     Dosage: 0.25 MG, DAILY, PO, 25 YEARS
     Route: 048

REACTIONS (1)
  - ANGIOPLASTY [None]
